FAERS Safety Report 15202765 (Version 1)
Quarter: 2018Q3

REPORT INFORMATION
  Report Type: Spontaneous
  Country: US (occurrence: US)
  Receive Date: 20180627
  Receipt Date: 20180627
  Transmission Date: 20181010
  Serious: Yes (Life-Threatening, Hospitalization)
  Sender: FDA-Public Use
  Company Number: None

PATIENT
  Age: 70 Year
  Sex: Male
  Weight: 70.76 kg

DRUGS (14)
  1. SIMPONI [Suspect]
     Active Substance: GOLIMUMAB
  2. CYANOCOBALAMIN. [Concomitant]
     Active Substance: CYANOCOBALAMIN
  3. TEMAZEPAM. [Concomitant]
     Active Substance: TEMAZEPAM
  4. ASPIRIN. [Concomitant]
     Active Substance: ASPIRIN
  5. FERROUS SULFATE. [Concomitant]
     Active Substance: FERROUS SULFATE
  6. METOPROLOL. [Concomitant]
     Active Substance: METOPROLOL
  7. ATORVASTAITN [Concomitant]
  8. NEXIUM [Concomitant]
     Active Substance: ESOMEPRAZOLE MAGNESIUM
  9. AZATHIOPRINE. [Concomitant]
     Active Substance: AZATHIOPRINE
  10. CLONAZEPAM. [Concomitant]
     Active Substance: CLONAZEPAM
  11. NITROGLYCERIN. [Concomitant]
     Active Substance: NITROGLYCERIN
  12. HUMIRA [Suspect]
     Active Substance: ADALIMUMAB
     Indication: COLITIS ULCERATIVE
     Dosage: ?          QUANTITY:100 ML MILLILITRE(S);?
     Dates: start: 201706, end: 201802
  13. BRILINTA [Concomitant]
     Active Substance: TICAGRELOR
  14. IMODIUM [Concomitant]
     Active Substance: LOPERAMIDE HYDROCHLORIDE

REACTIONS (6)
  - Myocardial infarction [None]
  - Product quality issue [None]
  - Arteritis [None]
  - Musculoskeletal pain [None]
  - Dyspepsia [None]
  - Product substitution issue [None]

NARRATIVE: CASE EVENT DATE: 20180319
